FAERS Safety Report 25331653 (Version 3)
Quarter: 2025Q2

REPORT INFORMATION
  Report Type: Spontaneous
  Country: JP (occurrence: JP)
  Receive Date: 20250519
  Receipt Date: 20250625
  Transmission Date: 20250717
  Serious: Yes (Death, Other)
  Sender: PFIZER
  Company Number: JP-PFIZER INC-PV202500059215

PATIENT
  Age: 84 Year
  Sex: Male
  Weight: 61.6 kg

DRUGS (1)
  1. TAFAMIDIS [Suspect]
     Active Substance: TAFAMIDIS
     Indication: Acquired ATTR amyloidosis
     Dosage: 61 MG, 1X/DAY, AFTER BREAKFAST
     Route: 048
     Dates: start: 20200615, end: 20241031

REACTIONS (9)
  - Gastric cancer [Fatal]
  - Metastases to peritoneum [Unknown]
  - Gallbladder enlargement [Unknown]
  - Chronic kidney disease [Unknown]
  - Blood pressure decreased [Unknown]
  - Renal cyst [Unknown]
  - Hiatus hernia [Unknown]
  - Jaundice [Unknown]
  - Fungal skin infection [Unknown]

NARRATIVE: CASE EVENT DATE: 20240801
